FAERS Safety Report 11218029 (Version 1)
Quarter: 2015Q2

REPORT INFORMATION
  Report Type: Report from Study
  Country: CZ (occurrence: None)
  Receive Date: 20150623
  Receipt Date: 20150623
  Transmission Date: 20150821
  Serious: Yes (Life-Threatening, Hospitalization, Other)
  Sender: FDA-Public Use
  Company Number: 2015SGN01011

PATIENT
  Sex: Female
  Weight: 40 kg

DRUGS (5)
  1. BRENTUXIMAB VEDOTIN (BRENTUXIMAB VEDOTIN) INJECTION [Suspect]
     Active Substance: BRENTUXIMAB VEDOTIN
     Indication: CHEMOTHERAPY
     Route: 042
     Dates: start: 20150521, end: 20150521
  2. METAMIZOLE (METAMIZOLE) [Concomitant]
     Active Substance: METAMIZOLE
  3. AMOXYCILLIN /00249601/ (AMOXICILLIN) [Concomitant]
  4. GENTAMICINE (GENTAMICIN SULFATE) [Concomitant]
  5. OMEPRAZOLE (OMEPRAZOLE) [Concomitant]
     Active Substance: OMEPRAZOLE

REACTIONS (4)
  - Upper gastrointestinal haemorrhage [None]
  - Necrosis [None]
  - Ulcer [None]
  - Tumour necrosis [None]

NARRATIVE: CASE EVENT DATE: 20150526
